FAERS Safety Report 4959762-7 (Version None)
Quarter: 2006Q1

REPORT INFORMATION
  Report Type: 
  Country: None (occurrence: None)
  Receive Date: 20060324
  Receipt Date: 20060313
  Transmission Date: 20060701
  Serious: Yes (Disabling)
  Sender: FDA-Public Use
  Company Number: 2006035631

PATIENT
  Sex: Female

DRUGS (6)
  1. NORVASC [Suspect]
     Indication: ILL-DEFINED DISORDER
     Dates: start: 19960101
  2. DOXAZOSIN (DOXAZOSIN) [Suspect]
     Indication: ILL-DEFINED DISORDER
     Dates: start: 19960101
  3. ZOLOFT [Suspect]
     Indication: ILL-DEFINED DISORDER
     Dates: start: 19960101
  4. CLONIDINE [Concomitant]
  5. HUMULIN (INSULIN HUMAN, INSULIN ISOPHANE, HUMAN BIOSYNTHETIC) [Concomitant]
  6. LANTUS [Concomitant]

REACTIONS (1)
  - DISABILITY [None]
